FAERS Safety Report 5922874-5 (Version None)
Quarter: 2008Q4

REPORT INFORMATION
  Report Type: 
  Country: None (occurrence: None)
  Receive Date: 20081017
  Receipt Date: 20081015
  Transmission Date: 20090506
  Serious: Yes (Death, Other)
  Sender: FDA-Public Use
  Company Number: PHBS2008JP06024

PATIENT
  Age: 23 Year
  Sex: Male

DRUGS (13)
  1. CYCLOSPORINE [Suspect]
     Indication: HISTIOCYTOSIS HAEMATOPHAGIC
     Dosage: 300 MG/DAY
  2. CYCLOSPORINE [Suspect]
     Indication: LYMPHOMA
  3. DEXAMETHASONE [Suspect]
     Indication: HISTIOCYTOSIS HAEMATOPHAGIC
     Dosage: 18 MG/DAY
  4. DEXAMETHASONE [Suspect]
     Indication: LYMPHOMA
  5. ETOPOSIDE [Suspect]
     Dosage: 270 MG, QW2
  6. ETOPOSIDE [Suspect]
     Dosage: 68 MG/DAY DAY1-4
  7. ETOPOSIDE [Suspect]
     Dosage: 42 MG/DAY DAY1-4
  8. METHYLPREDNISOLONE 16MG TAB [Suspect]
     Dosage: 500 MG/DAY DAY 1-5
  9. ARA-C [Suspect]
     Dosage: 3.4 G/DAY D5
  10. CISPLATIN [Suspect]
     Dosage: 42 MG/DAY DAY1-4
  11. CYCLOPHOSPHAMIDE [Suspect]
     Dosage: 900 MG, UNK
  12. ADRIAMYCIN PFS [Suspect]
     Dosage: 80 MG, UNK
  13. VINCRISTINE [Suspect]
     Dosage: 0.5 MG ON DAY1

REACTIONS (18)
  - BLOOD BETA-D-GLUCAN INCREASED [None]
  - CYTOMEGALOVIRUS INFECTION [None]
  - DUODENAL ULCER [None]
  - EPSTEIN-BARR VIRUS INFECTION [None]
  - FIBROSIS [None]
  - GASTRIC MUCOSAL LESION [None]
  - HAEMATEMESIS [None]
  - HAEMOLYSIS [None]
  - HAEMORRHAGIC CEREBRAL INFARCTION [None]
  - MELAENA [None]
  - MUCORMYCOSIS [None]
  - OROPHARYNGEAL CANDIDIASIS [None]
  - PLATELET COUNT DECREASED [None]
  - PULMONARY MASS [None]
  - RED BLOOD CELL SCHISTOCYTES PRESENT [None]
  - SPLEEN DISORDER [None]
  - SPLENIC NECROSIS [None]
  - THROMBOTIC MICROANGIOPATHY [None]
